FAERS Safety Report 19722926 (Version 2)
Quarter: 2021Q3

REPORT INFORMATION
  Report Type: Report from Study
  Country: GB (occurrence: GB)
  Receive Date: 20210820
  Receipt Date: 20210928
  Transmission Date: 20211014
  Serious: Yes (Hospitalization)
  Sender: FDA-Public Use
  Company Number: GB-CELLTRION INC.-2020GB019307

PATIENT

DRUGS (44)
  1. TRASTUZUMAB. [Suspect]
     Active Substance: TRASTUZUMAB
     Dosage: 450 MG, 3 WEEK
     Route: 042
     Dates: start: 20160629, end: 20180524
  2. DOCETAXEL. [Suspect]
     Active Substance: DOCETAXEL
     Dosage: 100 MG EVERY 3 WEEKS
     Route: 042
     Dates: start: 20160629, end: 20160720
  3. PERTUZUMAB. [Suspect]
     Active Substance: PERTUZUMAB
     Indication: BREAST CANCER METASTATIC
     Dosage: 840 MG, 3 WEEK
     Route: 042
     Dates: start: 20160516, end: 20160516
  4. PERTUZUMAB. [Suspect]
     Active Substance: PERTUZUMAB
     Dosage: 840 MG, 3 WEEK
     Route: 042
     Dates: start: 20160606, end: 20180524
  5. CARVEDILOL. [Concomitant]
     Active Substance: CARVEDILOL
     Dosage: 12.5 MG, 0.5 DAY
     Route: 048
  6. CETRIZINE [Concomitant]
     Active Substance: CETIRIZINE HYDROCHLORIDE
  7. LANSOPRAZOLE. [Concomitant]
     Active Substance: LANSOPRAZOLE
  8. MORPHINE SULFATE. [Concomitant]
     Active Substance: MORPHINE SULFATE
  9. DOCETAXEL. [Suspect]
     Active Substance: DOCETAXEL
     Indication: BREAST CANCER METASTATIC
     Dosage: 85 MG EVERY 3 WEEKS
     Route: 042
     Dates: start: 20160811, end: 20160831
  10. DOCETAXEL. [Suspect]
     Active Substance: DOCETAXEL
     Dosage: 124 MG EVERY 3 WEEKS
     Route: 042
     Dates: start: 20160517, end: 20160609
  11. BISOPROLOL [Concomitant]
     Active Substance: BISOPROLOL
  12. BUDESONIDE. [Concomitant]
     Active Substance: BUDESONIDE
  13. NYSTATIN. [Concomitant]
     Active Substance: NYSTATIN
  14. ZOPICLONE [Concomitant]
     Active Substance: ZOPICLONE
  15. NAPROXEN. [Concomitant]
     Active Substance: NAPROXEN
     Dosage: 250 MG, 0.25 DAY
     Route: 048
  16. PARACETAMOL [Concomitant]
     Active Substance: ACETAMINOPHEN
  17. ZOLEDRONIC ACID. [Concomitant]
     Active Substance: ZOLEDRONIC ACID
  18. AMETOP [TETRACAINE] [Concomitant]
     Active Substance: TETRACAINE
  19. BENZYDAMINE HYDROCHLORIDE [Concomitant]
     Active Substance: BENZYDAMINE HYDROCHLORIDE
  20. CALCICHEW D3 FORTE [Concomitant]
     Active Substance: CALCIUM\CHOLECALCIFEROL
  21. CARVEDILOL. [Concomitant]
     Active Substance: CARVEDILOL
     Dosage: UNK
  22. IRON ISOMALTOSIDE 1000 [Concomitant]
     Active Substance: IRON ISOMALTOSIDE 1000
  23. CAPECITABINE. [Suspect]
     Active Substance: CAPECITABINE
     Indication: BREAST CANCER METASTATIC
     Dosage: 2500 MG
     Route: 048
     Dates: start: 20191016
  24. NERATINIB [Suspect]
     Active Substance: NERATINIB
     Indication: BREAST CANCER METASTATIC
     Dosage: 240 MG, QD
     Route: 048
     Dates: start: 20191016
  25. FORTISIP [Concomitant]
     Active Substance: CARBOHYDRATES\FATTY ACIDS\MINERALS\PROTEIN\VITAMINS
     Dosage: UNK
  26. POTASSIUM [Concomitant]
     Active Substance: POTASSIUM
  27. TINZAPARIN [Concomitant]
     Active Substance: TINZAPARIN
     Dosage: UNK
  28. TRAMADOL. [Concomitant]
     Active Substance: TRAMADOL
  29. CANDESARTAN. [Concomitant]
     Active Substance: CANDESARTAN
     Dosage: 16 MG, 0.5 DAY
     Route: 048
  30. DEXAMETHASONE. [Concomitant]
     Active Substance: DEXAMETHASONE
  31. DOMPERIDONE [Concomitant]
     Active Substance: DOMPERIDONE
  32. LOPERAMIDE [Concomitant]
     Active Substance: LOPERAMIDE
  33. TRASTUZUMAB. [Suspect]
     Active Substance: TRASTUZUMAB
     Indication: BREAST CANCER METASTATIC
     Dosage: 450 MG, 3 WEEK
     Route: 042
     Dates: start: 20160606, end: 20160606
  34. CANDESARTAN. [Concomitant]
     Active Substance: CANDESARTAN
     Dosage: UNK
  35. CYCLIZINE [Concomitant]
     Active Substance: CYCLIZINE
  36. OMEPRAZOLE. [Concomitant]
     Active Substance: OMEPRAZOLE
     Dosage: 20 MG, 0.5 DAY
     Route: 048
  37. TRASTUZUMAB. [Suspect]
     Active Substance: TRASTUZUMAB
     Dosage: 450 MG, 3 WEEK
     Route: 041
     Dates: start: 20160516, end: 20160516
  38. TRASTUZUMAB EMTANSINE [Suspect]
     Active Substance: ADO-TRASTUZUMAB EMTANSINE
     Indication: BREAST CANCER METASTATIC
     Dosage: 180 MG, 3 WEEK
     Route: 042
     Dates: start: 20180904, end: 20190830
  39. CODEINE LINCTUS [Concomitant]
     Active Substance: CHLOROFORM\CODEINE PHOSPHATE\DRIMIA MARITIMA BULB
  40. FILGRASTIM [Concomitant]
     Active Substance: FILGRASTIM
  41. FORTISIP [Concomitant]
     Active Substance: CARBOHYDRATES\FATTY ACIDS\MINERALS\PROTEIN\VITAMINS
     Dosage: UNK
  42. IBUPROFEN. [Concomitant]
     Active Substance: IBUPROFEN
  43. SALBUTAMOL [Concomitant]
     Active Substance: ALBUTEROL
     Dosage: 2, QD
     Route: 065
  44. TINZAPARIN [Concomitant]
     Active Substance: TINZAPARIN
     Dosage: UNK

REACTIONS (1)
  - Acute kidney injury [Recovered/Resolved]

NARRATIVE: CASE EVENT DATE: 20191221
